FAERS Safety Report 5344533-2 (Version None)
Quarter: 2007Q2

REPORT INFORMATION
  Report Type: 
  Country: None (occurrence: None)
  Receive Date: 20070604
  Receipt Date: 20070524
  Transmission Date: 20071010
  Serious: Yes (Other)
  Sender: FDA-Public Use
  Company Number: SE-PFIZER INC-2007042515

PATIENT
  Sex: Male

DRUGS (1)
  1. PREDNISOLONE [Suspect]
     Indication: MUSCULAR DYSTROPHY

REACTIONS (2)
  - CATARACT [None]
  - OSTEOGENESIS IMPERFECTA [None]
